FAERS Safety Report 7378604-6 (Version None)
Quarter: 2011Q1

REPORT INFORMATION
  Report Type: 
  Country: None (occurrence: None)
  Receive Date: 20110328
  Receipt Date: 20110322
  Transmission Date: 20110831
  Serious: Yes (Other)
  Sender: FDA-Public Use
  Company Number: JP-PFIZER INC-2011063565

PATIENT

DRUGS (1)
  1. SOLU-MEDROL [Suspect]
     Indication: STEROID THERAPY
     Dosage: 1000 MG/DAY
     Route: 042

REACTIONS (1)
  - PULMONARY ALVEOLAR HAEMORRHAGE [None]
